FAERS Safety Report 23116862 (Version 1)
Quarter: 2023Q4

REPORT INFORMATION
  Report Type: Spontaneous
  Country: AM (occurrence: AM)
  Receive Date: 20231027
  Receipt Date: 20231027
  Transmission Date: 20240110
  Serious: Yes (Other)
  Sender: FDA-Public Use
  Company Number: AM-SUN PHARMACEUTICAL INDUSTRIES LTD-2023RR-414461

PATIENT
  Age: 53 Year
  Sex: Male

DRUGS (6)
  1. ACETAMINOPHEN [Suspect]
     Active Substance: ACETAMINOPHEN
     Indication: Product used for unknown indication
     Dosage: 500 MILLIGRAM, DAILY
     Route: 048
  2. AMOXICILLIN [Suspect]
     Active Substance: AMOXICILLIN
     Indication: Product used for unknown indication
     Dosage: 500 MILLIGRAM, DAILY
     Route: 065
  3. CEFACLOR [Suspect]
     Active Substance: CEFACLOR
     Indication: Antibiotic therapy
     Dosage: UNK
     Route: 065
  4. AZITHROMYCIN [Suspect]
     Active Substance: AZITHROMYCIN
     Indication: COVID-19
     Dosage: 500 MILLIGRAM, DAILY
     Route: 065
  5. DICLOFENAC [Suspect]
     Active Substance: DICLOFENAC
     Indication: Vasculitis
     Dosage: 75 MILLIGRAM, DAILY
     Route: 030
  6. DEXAMETHASONE [Suspect]
     Active Substance: DEXAMETHASONE
     Indication: Vasculitis
     Dosage: 20 MILLIGRAM, DAILY
     Route: 042

REACTIONS (4)
  - Self-medication [Unknown]
  - Vasculitis [Recovering/Resolving]
  - Off label use [Unknown]
  - Skin reaction [Recovered/Resolved]
